FAERS Safety Report 9435663 (Version 1)
Quarter: 2013Q3

REPORT INFORMATION
  Report Type: Spontaneous
  Country: FR (occurrence: FR)
  Receive Date: 20130801
  Receipt Date: 20130801
  Transmission Date: 20140515
  Serious: Yes (Hospitalization)
  Sender: FDA-Public Use
  Company Number: FR-BAYER-2013-090690

PATIENT
  Age: 73 Year
  Sex: Female

DRUGS (3)
  1. CIFLOX [Suspect]
     Dosage: UNK
     Route: 048
     Dates: start: 20130430, end: 20130430
  2. MIRTAZAPINE [Suspect]
     Dosage: 1 DF, QD
     Route: 048
     Dates: start: 201302, end: 20130502
  3. ARICEPT [Suspect]
     Dosage: 1 DF, QD
     Route: 048
     Dates: start: 2008, end: 20130506

REACTIONS (1)
  - Cholestasis [Recovered/Resolved]
